FAERS Safety Report 14359810 (Version 1)
Quarter: 2018Q1

REPORT INFORMATION
  Report Type: Spontaneous
  Country: US (occurrence: US)
  Receive Date: 20180105
  Receipt Date: 20180105
  Transmission Date: 20180509
  Serious: No
  Sender: FDA-Public Use
  Company Number: -SAAVPROD-BI2017BI018964

PATIENT
  Sex: Male

DRUGS (8)
  1. ASCORBIC ACID. [Concomitant]
     Active Substance: ASCORBIC ACID
     Indication: SUPPLEMENTATION THERAPY
     Dosage: 1 TWICE DAY;  FORM STRENGTH: 500MG; FORMULATION: TABLET
     Route: 048
  2. FISHOIL [Concomitant]
     Indication: SUPPLEMENTATION THERAPY
     Dosage: 1 DAILY;  FORM STRENGTH: 650MG; FORMULATION: TABLET
     Route: 048
  3. RANITIDINE HYDROCHLORIDE. [Suspect]
     Active Substance: RANITIDINE HYDROCHLORIDE
     Indication: DYSPEPSIA
     Dosage: 1 DAILY;  FORM STRENGTH: 150 MG; FORMULATION: TABLET? ADMINISTRATION CORRECT? NO ?ACTION(S) TAKEN WI
     Route: 048
     Dates: start: 2016
  4. FISHOIL [Concomitant]
     Indication: SUPPLEMENTATION THERAPY
     Dosage: 1 DAILY;  FORM STRENGTH: 1400MG; FORMULATION: TABLET
     Route: 048
  5. ERGOCALCIFEROL. [Concomitant]
     Active Substance: ERGOCALCIFEROL
     Indication: SUPPLEMENTATION THERAPY
     Dosage: 1 DAILY;  FORM STRENGTH: 2000MG; FORMULATION: TABLET
     Route: 048
  6. ATENOLOL. [Concomitant]
     Active Substance: ATENOLOL
     Indication: CORONARY ARTERY BYPASS
     Dosage: 1 TABLET DAILY;  FORM STRENGTH: 50MG; FORMULATION: TABLET
     Route: 048
     Dates: start: 2009
  7. ROSUVASTATIN CALCIUM. [Concomitant]
     Active Substance: ROSUVASTATIN CALCIUM
     Indication: BLOOD CHOLESTEROL INCREASED
     Dosage: 1 TABLET DAILY;  FORM STRENGTH: 5MG; FORMULATION: TABLET
     Route: 048
     Dates: start: 2009
  8. LEVOTHYROXINE SODIUM. [Concomitant]
     Active Substance: LEVOTHYROXINE SODIUM
     Indication: HYPOTHYROIDISM
     Dosage: 175MCG ONCE A DAY;
     Dates: start: 2007

REACTIONS (2)
  - Incorrect drug administration duration [Unknown]
  - Dyspepsia [Unknown]

NARRATIVE: CASE EVENT DATE: 2016
